FAERS Safety Report 22964279 (Version 5)
Quarter: 2023Q4

REPORT INFORMATION
  Report Type: Spontaneous
  Country: US (occurrence: US)
  Receive Date: 20230921
  Receipt Date: 20231031
  Transmission Date: 20240109
  Serious: Yes (Life-Threatening, Hospitalization, Other)
  Sender: FDA-Public Use
  Company Number: US-GLAXOSMITHKLINE-US2023AMR126438

PATIENT

DRUGS (1)
  1. ZEJULA [Suspect]
     Active Substance: NIRAPARIB
     Indication: Ovarian cancer
     Dosage: 200 MG, QD
     Route: 048
     Dates: start: 20230829, end: 20230921

REACTIONS (13)
  - Thrombocytopenia [Recovering/Resolving]
  - Platelet count decreased [Recovered/Resolved]
  - Blood pressure increased [Not Recovered/Not Resolved]
  - Palpitations [Not Recovered/Not Resolved]
  - Feeling abnormal [Not Recovered/Not Resolved]
  - Stress [Unknown]
  - Decreased activity [Not Recovered/Not Resolved]
  - Heart rate increased [Not Recovered/Not Resolved]
  - Limb injury [Unknown]
  - Contusion [Recovering/Resolving]
  - Rash macular [Recovering/Resolving]
  - Dizziness [Not Recovered/Not Resolved]
  - Increased tendency to bruise [Recovering/Resolving]

NARRATIVE: CASE EVENT DATE: 20230922
